FAERS Safety Report 21531251 (Version 1)
Quarter: 2022Q4

REPORT INFORMATION
  Report Type: Spontaneous
  Country: US (occurrence: None)
  Receive Date: 20221028
  Receipt Date: 20221028
  Transmission Date: 20230113
  Serious: No
  Sender: FDA-Public Use
  Company Number: None

PATIENT
  Sex: Female

DRUGS (1)
  1. GLATIRAMER ACETATE [Suspect]
     Active Substance: GLATIRAMER ACETATE
     Indication: Multiple sclerosis
     Dosage: 40MG  3 TIMES PER WEEK SUBCUTANEOUS?
     Route: 058
     Dates: start: 20190301

REACTIONS (4)
  - Device defective [None]
  - Device difficult to use [None]
  - Needle issue [None]
  - Drug dose omission by device [None]
